FAERS Safety Report 16943358 (Version 1)
Quarter: 2019Q4

REPORT INFORMATION
  Report Type: Spontaneous
  Country: CA (occurrence: CA)
  Receive Date: 20191022
  Receipt Date: 20191022
  Transmission Date: 20200122
  Serious: Yes (Other)
  Sender: FDA-Public Use
  Company Number: CA-AUROBINDO-AUR-APL-2019-067693

PATIENT
  Age: 24 Year
  Sex: Male
  Weight: 80 kg

DRUGS (3)
  1. REMICADE [Suspect]
     Active Substance: INFLIXIMAB
     Indication: CROHN^S DISEASE
     Dosage: 400 MILLIGRAM, ONCE EVERY 8 WEEKS
     Route: 042
  2. AMOXICILLIN. [Suspect]
     Active Substance: AMOXICILLIN
     Indication: EAR PAIN
     Dosage: UNK
     Route: 065
  3. REMICADE [Suspect]
     Active Substance: INFLIXIMAB
     Indication: CROHN^S DISEASE
     Dosage: 800 MILLIGRAM, ONCE EVERY 8 WEEKS
     Route: 042

REACTIONS (11)
  - Fatigue [Not Recovered/Not Resolved]
  - Asthenia [Not Recovered/Not Resolved]
  - Ear pain [Not Recovered/Not Resolved]
  - Rib fracture [Not Recovered/Not Resolved]
  - Vomiting [Not Recovered/Not Resolved]
  - Contusion [Not Recovered/Not Resolved]
  - Malaise [Not Recovered/Not Resolved]
  - Stress [Not Recovered/Not Resolved]
  - Headache [Not Recovered/Not Resolved]
  - Head discomfort [Not Recovered/Not Resolved]
  - Non-24-hour sleep-wake disorder [Not Recovered/Not Resolved]
